FAERS Safety Report 5519254-3 (Version None)
Quarter: 2007Q4

REPORT INFORMATION
  Report Type: 
  Country: None (occurrence: None)
  Receive Date: 20071116
  Receipt Date: 20071106
  Transmission Date: 20080405
  Serious: Yes (Life-Threatening)
  Sender: FDA-Public Use
  Company Number: JP-ROCHE-506895

PATIENT
  Age: 71 Year
  Sex: Male

DRUGS (14)
  1. PANALDINE [Suspect]
     Indication: ANGINA PECTORIS
     Dosage: INDICATION FOR USE: CORONARY ARTERY STENT INSERTION/ANGINA PECTORIS.
     Route: 048
     Dates: start: 20060720, end: 20070530
  2. PANALDINE [Suspect]
     Dosage: INDICATION FOR USE: ANGINA PECTORIS.
     Route: 048
     Dates: start: 20070612, end: 20070620
  3. OMEPRAL [Suspect]
     Indication: GASTRIC ULCER
     Route: 065
     Dates: start: 20070530, end: 20070601
  4. OMEPRAL [Suspect]
     Route: 065
     Dates: start: 20070608, end: 20070617
  5. DIOVAN [Concomitant]
     Indication: HYPERTENSION
     Route: 048
     Dates: start: 20040830, end: 20070620
  6. SIGMART [Concomitant]
     Indication: ANGINA PECTORIS
     Route: 048
     Dates: start: 20040830, end: 20070620
  7. BAYASPIRIN [Concomitant]
     Indication: ANGINA PECTORIS
     Dosage: GENERIC NAME REPORTED: ACETYLSALICYLIC ACID
     Route: 048
     Dates: start: 20060720, end: 20070530
  8. BAYASPIRIN [Concomitant]
     Route: 048
     Dates: start: 20070612, end: 20070620
  9. AMLODIPINE [Concomitant]
     Indication: ANGINA PECTORIS
     Dosage: GENERIC NAME REPORTED: AMLODIPINE BESILATE
     Route: 048
     Dates: start: 20040501, end: 20070620
  10. RHYTHMY [Concomitant]
     Indication: INSOMNIA
     Route: 048
     Dates: start: 20040101, end: 20070620
  11. SIMVASTATIN [Concomitant]
     Indication: HYPERLIPIDAEMIA
     Route: 048
     Dates: start: 20041102, end: 20070620
  12. RABEPRAZOLE SODIUM [Concomitant]
     Indication: GASTRIC ULCER
     Dosage: GENERIC REPORTED AS RABEPRAZOLE SODIUM.
     Route: 048
     Dates: start: 20060720, end: 20070620
  13. VITAMEDIN [Concomitant]
     Route: 041
     Dates: start: 20070530
  14. FAMOTIDINE [Concomitant]
     Indication: GASTRIC ULCER
     Route: 048
     Dates: start: 20070617, end: 20070625

REACTIONS (5)
  - ANAEMIA [None]
  - HEPATIC ENZYME INCREASED [None]
  - PANCYTOPENIA [None]
  - PNEUMONIA [None]
  - TOXIC EPIDERMAL NECROLYSIS [None]
